FAERS Safety Report 7507411-6 (Version None)
Quarter: 2011Q2

REPORT INFORMATION
  Report Type: 
  Country: None (occurrence: None)
  Receive Date: 20110526
  Receipt Date: 20110519
  Transmission Date: 20111010
  Serious: Yes (Death, Hospitalization)
  Sender: FDA-Public Use
  Company Number: US-MILLENNIUM PHARMACEUTICALS, INC.-2011-02072

PATIENT
  Age: 69 Year
  Sex: Male
  Weight: 68.027 kg

DRUGS (1)
  1. VELCADE [Suspect]
     Indication: MULTIPLE MYELOMA
     Dosage: 2.3 MG, CYCLIC
     Route: 042
     Dates: start: 20110214, end: 20110224

REACTIONS (7)
  - DEATH [None]
  - DYSPNOEA [None]
  - SMALL INTESTINAL OBSTRUCTION [None]
  - TENDON RUPTURE [None]
  - HUMERUS FRACTURE [None]
  - URINARY RETENTION [None]
  - SEPSIS [None]
